FAERS Safety Report 22389658 (Version 3)
Quarter: 2023Q4

REPORT INFORMATION
  Report Type: Spontaneous
  Country: JP (occurrence: None)
  Receive Date: 20230531
  Receipt Date: 20231004
  Transmission Date: 20240110
  Serious: No
  Sender: FDA-Public Use
  Company Number: 2023A122200

PATIENT
  Age: 83 Year
  Sex: Female
  Weight: 40 kg

DRUGS (15)
  1. DAPAGLIFLOZIN [Suspect]
     Active Substance: DAPAGLIFLOZIN
     Indication: Diabetes mellitus
     Route: 048
     Dates: start: 20230309
  2. PITAVASTATIN CALCIUM [Concomitant]
     Active Substance: PITAVASTATIN CALCIUM
     Dosage: DOSE UNKNOWN
     Route: 048
     Dates: start: 20230309
  3. SODIUM FERROUS CITRATE [Concomitant]
     Active Substance: SODIUM FERROUS CITRATE
     Dosage: DOSE UNKNOWN
     Route: 048
     Dates: start: 20230309
  4. ELDECALCITOL [Concomitant]
     Active Substance: ELDECALCITOL
     Dosage: DOSE UNKNOWN
     Route: 048
     Dates: start: 20230309
  5. ESOMEPRAZOLE [Concomitant]
     Active Substance: ESOMEPRAZOLE
     Dosage: DOSE UNKNOWN
     Route: 048
     Dates: start: 20230309
  6. GLICLAZIDE [Concomitant]
     Active Substance: GLICLAZIDE
     Dosage: DOSE UNKNOWN
     Route: 048
     Dates: start: 20230309
  7. MAGNESIUM OXIDE [Concomitant]
     Active Substance: MAGNESIUM OXIDE
     Dosage: DOSE UNKNOWN
     Route: 048
     Dates: start: 20230309
  8. AMLODIPINE [Concomitant]
     Active Substance: AMLODIPINE BESYLATE
     Dosage: DOSE UNKNOWN
     Route: 048
     Dates: start: 20230310
  9. ENTRESTO [Concomitant]
     Active Substance: SACUBITRIL\VALSARTAN
     Dosage: DOSE UNKNOWN
     Route: 048
     Dates: start: 20230310
  10. CARVEDILOL [Concomitant]
     Active Substance: CARVEDILOL
     Dosage: DOSE UNKNOWN
     Route: 048
     Dates: start: 20230309
  11. LEVOFLOXACIN HEMIHYDRATE [Concomitant]
     Active Substance: LEVOFLOXACIN
     Dates: start: 20230306
  12. CALONAL [Concomitant]
     Active Substance: ACETAMINOPHEN
     Dates: start: 20230306
  13. FLOPROPIONE [Concomitant]
     Active Substance: FLOPROPIONE
     Dates: start: 20230306
  14. NOREPINEPHRINE [Concomitant]
     Active Substance: NOREPINEPHRINE
     Dates: start: 20230307
  15. CEFOTIAM [Concomitant]
     Active Substance: CEFOTIAM
     Route: 042
     Dates: start: 20230307, end: 20230313

REACTIONS (1)
  - Off label use [Unknown]
